FAERS Safety Report 6794511-1 (Version None)
Quarter: 2010Q2

REPORT INFORMATION
  Report Type: 
  Country: None (occurrence: None)
  Receive Date: 20100625
  Receipt Date: 20100614
  Transmission Date: 20101027
  Serious: Yes (Life-Threatening, Other)
  Sender: FDA-Public Use
  Company Number: DK-PFIZER INC-2010043097

PATIENT
  Age: 53 Year
  Sex: Male
  Weight: 78 kg

DRUGS (6)
  1. ZOLOFT [Suspect]
     Indication: DEPRESSION
     Dosage: 200 MG, 1X/DAY
     Route: 048
     Dates: start: 20100318
  2. OMEPRAZOLE [Interacting]
     Indication: DYSPEPSIA
     Dosage: 20 MG, 1X/DAY
     Route: 048
     Dates: start: 20080515, end: 20100323
  3. SEROQUEL [Interacting]
     Indication: DEPRESSION
     Dosage: 250MG DAILY
     Route: 048
     Dates: start: 20100318
  4. SIMVASTATIN [Concomitant]
     Dosage: 40 MG, 1X/DAY
  5. LOCOID [Concomitant]
     Dosage: UNK
     Route: 003
  6. LINK [Concomitant]
     Dosage: 10 ML, AS NEEDED

REACTIONS (2)
  - CARDIAC ARREST [None]
  - DRUG INTERACTION [None]
